FAERS Safety Report 11719935 (Version 1)
Quarter: 2015Q4

REPORT INFORMATION
  Report Type: Spontaneous
  Country: US (occurrence: US)
  Receive Date: 20151110
  Receipt Date: 20151110
  Transmission Date: 20160304
  Serious: Yes (Other)
  Sender: FDA-Public Use
  Company Number: US-BAYER-2015-464429

PATIENT
  Age: 32 Year
  Sex: Female

DRUGS (1)
  1. MIRENA [Suspect]
     Active Substance: LEVONORGESTREL
     Indication: MENORRHAGIA
     Dosage: 20 MCG/24HR, CONT
     Route: 015
     Dates: start: 20150721, end: 20151104

REACTIONS (4)
  - Intentional device misuse [None]
  - Intentional device misuse [Recovered/Resolved]
  - Device expulsion [Recovered/Resolved]
  - Device dislocation [None]

NARRATIVE: CASE EVENT DATE: 201508
